FAERS Safety Report 18693877 (Version 1)
Quarter: 2021Q1

REPORT INFORMATION
  Report Type: Spontaneous
  Country: CN (occurrence: CN)
  Receive Date: 20210104
  Receipt Date: 20210104
  Transmission Date: 20210419
  Serious: Yes (Death, Other)
  Sender: FDA-Public Use
  Company Number: CN-ASTRAZENECA-2020SF74169

PATIENT
  Age: 53 Year
  Sex: Male

DRUGS (2)
  1. OSIMERTINIB. [Suspect]
     Active Substance: OSIMERTINIB
     Indication: NON-SMALL CELL LUNG CANCER
     Route: 048
  2. AFATINIB [Concomitant]
     Active Substance: AFATINIB

REACTIONS (2)
  - Drug resistance [Unknown]
  - Acquired gene mutation [Unknown]
